FAERS Safety Report 4853558-2 (Version None)
Quarter: 2005Q4

REPORT INFORMATION
  Report Type: 
  Country: None (occurrence: None)
  Receive Date: 20051209
  Receipt Date: 20051127
  Transmission Date: 20060501
  Serious: Yes (Other)
  Sender: FDA-Public Use
  Company Number: 2005160885

PATIENT
  Age: 54 Year
  Sex: Male

DRUGS (7)
  1. VIAGRA [Suspect]
     Indication: ERECTILE DYSFUNCTION
     Dosage: 4 YRS. AGO
  2. CIALIS [Suspect]
     Indication: ILL-DEFINED DISORDER
  3. TENORMIN [Concomitant]
  4. MORPHINE [Concomitant]
  5. LOVASTATIN [Concomitant]
  6. ZOLOFT [Concomitant]
  7. FUROSEMIDE [Concomitant]

REACTIONS (2)
  - DRUG INEFFECTIVE [None]
  - SURGERY [None]
